FAERS Safety Report 6754024-X (Version None)
Quarter: 2010Q2

REPORT INFORMATION
  Report Type: 
  Country: None (occurrence: None)
  Receive Date: 20100603
  Receipt Date: 20100526
  Transmission Date: 20101027
  Serious: Yes (Hospitalization)
  Sender: FDA-Public Use
  Company Number: B0658608A

PATIENT
  Age: 58 Year
  Sex: Male

DRUGS (2)
  1. KIVEXA [Suspect]
     Indication: ASYMPTOMATIC HIV INFECTION
     Dosage: 600MG PER DAY
     Route: 048
     Dates: start: 20071201, end: 20100331
  2. ETRAVIRINE [Concomitant]
     Indication: ASYMPTOMATIC HIV INFECTION
     Dosage: 200MG PER DAY
     Route: 048
     Dates: start: 20071201

REACTIONS (2)
  - CEREBRAL ARTERY STENOSIS [None]
  - CEREBROVASCULAR ACCIDENT [None]
